FAERS Safety Report 14229953 (Version 1)
Quarter: 2017Q4

REPORT INFORMATION
  Report Type: Spontaneous
  Country: CA (occurrence: CA)
  Receive Date: 20171128
  Receipt Date: 20171128
  Transmission Date: 20180321
  Serious: Yes (Hospitalization)
  Sender: FDA-Public Use
  Company Number: CA-CELGENEUS-CAN-20171105442

PATIENT
  Age: 73 Year
  Sex: Male
  Weight: 87.4 kg

DRUGS (23)
  1. DEXAMETHASONE ORAL [Suspect]
     Active Substance: DEXAMETHASONE
     Indication: PLASMA CELL MYELOMA
     Dosage: 20 MILLIGRAM
     Route: 048
     Dates: start: 20141212, end: 20150501
  2. VALACICLOVIR HYDROCHLORIDE [Concomitant]
     Active Substance: VALACYCLOVIR HYDROCHLORIDE
     Indication: ANTIVIRAL PROPHYLAXIS
     Dosage: 500 MILLIGRAM
     Route: 048
     Dates: start: 201101
  3. NEPAFENAC [Concomitant]
     Active Substance: NEPAFENAC
     Indication: CATARACT
     Route: 047
     Dates: start: 20150421
  4. DAPSONE. [Concomitant]
     Active Substance: DAPSONE
     Indication: DERMATITIS HERPETIFORMIS
     Dosage: 50 MILLIGRAM
     Route: 048
     Dates: start: 2012
  5. DEXAMETHASONE ORAL [Suspect]
     Active Substance: DEXAMETHASONE
     Dosage: 20 MILLIGRAM
     Route: 048
     Dates: start: 20150522
  6. DOCUSATE SODIUM. [Concomitant]
     Active Substance: DOCUSATE SODIUM
     Indication: CONSTIPATION
     Dosage: 100 MILLIGRAM
     Route: 048
     Dates: start: 201412
  7. DARATUMUMAB [Suspect]
     Active Substance: DARATUMUMAB
     Dosage: 1398 MILLIGRAM
     Route: 041
     Dates: start: 20150522
  8. ZOLEDRONIC ACID [Concomitant]
     Active Substance: ZOLEDRONIC ACID
     Indication: NUTRITIONAL SUPPLEMENTATION
     Dosage: 4 MILLIGRAM
     Route: 041
     Dates: start: 2011
  9. ZOPICLONE [Concomitant]
     Active Substance: ZOPICLONE
     Indication: INSOMNIA
     Dosage: 7.5 MILLIGRAM
     Route: 048
     Dates: start: 201412
  10. MUPIROCIN. [Concomitant]
     Active Substance: MUPIROCIN
     Indication: PSORIASIS
     Route: 061
     Dates: start: 2010
  11. ACITRETIN. [Concomitant]
     Active Substance: ACITRETIN
     Indication: PSORIASIS
     Dosage: 25 MILLIGRAM
     Route: 048
     Dates: start: 201310
  12. PARACETAMOL [Concomitant]
     Active Substance: ACETAMINOPHEN
     Indication: OSTEOARTHRITIS
     Route: 048
     Dates: start: 2010
  13. REVLIMID [Suspect]
     Active Substance: LENALIDOMIDE
     Indication: PLASMA CELL MYELOMA
     Dosage: 15 MILLIGRAM
     Route: 048
     Dates: start: 20141212, end: 20150512
  14. REVLIMID [Suspect]
     Active Substance: LENALIDOMIDE
     Dosage: 15 MILLIGRAM
     Route: 048
     Dates: start: 20150522
  15. LAXATIVE [Concomitant]
     Active Substance: UNSPECIFIED INGREDIENT
     Indication: CONSTIPATION
     Route: 048
     Dates: start: 201412
  16. TERBINAFINE. [Concomitant]
     Active Substance: TERBINAFINE
     Indication: FUNGAL INFECTION
     Route: 061
     Dates: start: 2011
  17. SENNA [Concomitant]
     Active Substance: SENNA LEAF\SENNOSIDES\SENNOSIDES A AND B
     Indication: CONSTIPATION
     Route: 065
  18. WARFARIN [Concomitant]
     Active Substance: WARFARIN
     Indication: THROMBOSIS PROPHYLAXIS
     Route: 048
     Dates: start: 2010
  19. SENOKOT [Concomitant]
     Active Substance: SENNOSIDES
     Indication: CONSTIPATION
     Route: 048
     Dates: start: 201412
  20. DARATUMUMAB [Suspect]
     Active Substance: DARATUMUMAB
     Indication: PLASMA CELL MYELOMA
     Dosage: 1398 MILLIGRAM
     Route: 041
     Dates: start: 20141212, end: 20150430
  21. MUPIROCIN. [Concomitant]
     Active Substance: MUPIROCIN
     Indication: PSORIASIS
  22. ACITRETIN. [Concomitant]
     Active Substance: ACITRETIN
     Indication: PSORIASIS
  23. VALACICLOVIR HYDROCHLORIDE [Concomitant]
     Active Substance: VALACYCLOVIR HYDROCHLORIDE
     Indication: HERPES ZOSTER

REACTIONS (1)
  - Gastrointestinal angiodysplasia haemorrhagic [Recovered/Resolved]

NARRATIVE: CASE EVENT DATE: 20150511
